FAERS Safety Report 9421755 (Version 1)
Quarter: 2013Q3

REPORT INFORMATION
  Report Type: Spontaneous
  Country: US (occurrence: US)
  Receive Date: 20130726
  Receipt Date: 20130726
  Transmission Date: 20140515
  Serious: No
  Sender: FDA-Public Use
  Company Number: US-B.I. PHARMACEUTICALS,INC./RIDGEFIELD-2013-BI-21724BP

PATIENT
  Age: 78 Year
  Sex: Female
  Weight: 72 kg

DRUGS (12)
  1. SPIRIVA [Suspect]
     Indication: CHRONIC OBSTRUCTIVE PULMONARY DISEASE
     Dosage: 18 MCG
     Route: 055
     Dates: start: 2008
  2. METFORMIN [Concomitant]
     Indication: DIABETES MELLITUS
     Dosage: 1500 MG
     Route: 048
     Dates: start: 1993
  3. PENTASA [Concomitant]
     Indication: COLITIS
     Dosage: 4000 MG
     Route: 048
     Dates: start: 2007
  4. CLONAZEPAM [Concomitant]
     Indication: ANXIETY
     Dosage: 1 MG
     Route: 048
     Dates: start: 2010
  5. DIOVAN [Concomitant]
     Indication: PALPITATIONS
     Dosage: 80 MG
     Route: 048
     Dates: start: 2007
  6. PRAVASTATIN [Concomitant]
     Indication: BLOOD CHOLESTEROL INCREASED
     Dosage: 20 MG
     Route: 048
     Dates: start: 2007
  7. FLUTICASONE [Concomitant]
     Indication: SINUSITIS
     Dosage: 50 MG
     Route: 045
     Dates: start: 2007
  8. FLUOXETINE [Concomitant]
     Indication: DEPRESSION
     Dosage: 20 MG
     Route: 048
     Dates: start: 2007
  9. PROAIR [Concomitant]
     Indication: CHRONIC OBSTRUCTIVE PULMONARY DISEASE
     Dosage: STRENGTH: 1 PUFF
     Route: 055
     Dates: start: 2007
  10. FUROSEMIDE [Concomitant]
     Indication: OEDEMA
     Route: 048
     Dates: start: 201305
  11. DIGOXIN [Concomitant]
     Indication: PALPITATIONS
     Dosage: 0.125 MG
     Route: 048
     Dates: start: 2007
  12. OMEPRAZOLE [Concomitant]
     Indication: DYSPEPSIA
     Dosage: 20 MG
     Route: 048
     Dates: start: 2007

REACTIONS (1)
  - Gait disturbance [Not Recovered/Not Resolved]
